FAERS Safety Report 25709230 (Version 1)
Quarter: 2025Q3

REPORT INFORMATION
  Report Type: Report from Study
  Country: CO (occurrence: CO)
  Receive Date: 20250821
  Receipt Date: 20250821
  Transmission Date: 20251020
  Serious: Yes (Hospitalization)
  Sender: TAKEDA
  Company Number: CO-TAKEDA-2023TUS083492

PATIENT
  Age: 61 Year
  Sex: Female
  Weight: 62 kg

DRUGS (3)
  1. ICATIBANT [Suspect]
     Active Substance: ICATIBANT ACETATE
     Indication: Hereditary angioedema
  2. ICATIBANT [Suspect]
     Active Substance: ICATIBANT ACETATE
  3. TRANEXAMIC ACID [Concomitant]
     Active Substance: TRANEXAMIC ACID

REACTIONS (8)
  - Ulna fracture [Unknown]
  - Radius fracture [Unknown]
  - Limb injury [Unknown]
  - Weight decreased [Unknown]
  - Weight increased [Unknown]
  - Body height decreased [Unknown]
  - Fall [Unknown]
  - Accident at home [Unknown]

NARRATIVE: CASE EVENT DATE: 20230823
